FAERS Safety Report 13975560 (Version 1)
Quarter: 2017Q3

REPORT INFORMATION
  Report Type: Spontaneous
  Country: DK (occurrence: DK)
  Receive Date: 20170915
  Receipt Date: 20170915
  Transmission Date: 20171128
  Serious: Yes (Death, Other)
  Sender: FDA-Public Use
  Company Number: DK-NAPPMUNDI-GBR-2017-0048807

PATIENT

DRUGS (1)
  1. OXYNORM [Suspect]
     Active Substance: OXYCODONE HYDROCHLORIDE
     Indication: ABDOMINAL PAIN UPPER
     Dosage: TOTAL DOSE25 MG OVER 12 HOURS ON 21JUN2016
     Route: 065
     Dates: start: 20160621

REACTIONS (8)
  - Acidosis [Unknown]
  - Blindness [Unknown]
  - Cerebrovascular accident [Not Recovered/Not Resolved]
  - Muscular weakness [Unknown]
  - Cerebral infarction [Not Recovered/Not Resolved]
  - Depressed level of consciousness [Recovered/Resolved]
  - Overdose [Fatal]
  - Dyspnoea [Unknown]

NARRATIVE: CASE EVENT DATE: 20160622
